FAERS Safety Report 21074058 (Version 2)
Quarter: 2022Q3

REPORT INFORMATION
  Report Type: Spontaneous
  Country: JP (occurrence: JP)
  Receive Date: 20220713
  Receipt Date: 20220809
  Transmission Date: 20221027
  Serious: Yes (Other)
  Sender: FDA-Public Use
  Company Number: JP-Teva Takeda Yakuhin-2022-JP-002776J

PATIENT
  Age: 65 Year
  Sex: Male

DRUGS (2)
  1. ESTAZOLAM [Suspect]
     Active Substance: ESTAZOLAM
     Indication: Product used for unknown indication
     Dosage: 4 MILLIGRAM DAILY;
     Route: 048
     Dates: end: 2022
  2. ESTAZOLAM [Suspect]
     Active Substance: ESTAZOLAM
     Route: 048
     Dates: start: 2022

REACTIONS (1)
  - Delirium [Recovering/Resolving]

NARRATIVE: CASE EVENT DATE: 20220101
